FAERS Safety Report 23216269 (Version 1)
Quarter: 2023Q4

REPORT INFORMATION
  Report Type: Spontaneous
  Country: US (occurrence: US)
  Receive Date: 20231122
  Receipt Date: 20231122
  Transmission Date: 20240110
  Serious: Yes (Death, Other)
  Sender: FDA-Public Use
  Company Number: US-ENDO-CASE-0045476

PATIENT

DRUGS (7)
  1. DIAZEPAM [Suspect]
     Active Substance: DIAZEPAM
  2. ENDOCET [Suspect]
     Active Substance: ACETAMINOPHEN\OXYCODONE HYDROCHLORIDE
  3. PERCOCET [Suspect]
     Active Substance: ACETAMINOPHEN\OXYCODONE HYDROCHLORIDE
  4. OXYCODONE [Suspect]
     Active Substance: OXYCODONE
  5. MORPHINE [Suspect]
     Active Substance: MORPHINE
  6. TEMAZEPAM [Suspect]
     Active Substance: TEMAZEPAM
  7. DEPODUR [Suspect]
     Active Substance: MORPHINE SULFATE

REACTIONS (3)
  - Death [Fatal]
  - Hypoxia [Unknown]
  - Foetal exposure during pregnancy [Unknown]
